FAERS Safety Report 18649036 (Version 1)
Quarter: 2020Q4

REPORT INFORMATION
  Report Type: Spontaneous
  Country: US (occurrence: US)
  Receive Date: 20201221
  Receipt Date: 20201221
  Transmission Date: 20210114
  Serious: No
  Sender: FDA-Public Use
  Company Number: None

PATIENT
  Age: 28 Year
  Sex: Male
  Weight: 137 kg

DRUGS (1)
  1. INFLIXIMAB (INFLIXIMAB 100MG/VIL (PF) INJ) [Suspect]
     Active Substance: INFLIXIMAB
     Dates: start: 20190409, end: 20201104

REACTIONS (3)
  - Tachypnoea [None]
  - Dyspnoea [None]
  - Tachycardia [None]

NARRATIVE: CASE EVENT DATE: 20201104
